FAERS Safety Report 16400684 (Version 2)
Quarter: 2019Q3

REPORT INFORMATION
  Report Type: Report from Study
  Country: CA (occurrence: CA)
  Receive Date: 20190606
  Receipt Date: 20190714
  Transmission Date: 20191004
  Serious: Yes (Death)
  Sender: FDA-Public Use
  Company Number: CA-HLSUS-2019-CA-000616

PATIENT
  Age: 67 Year
  Sex: Male
  Weight: 76.6 kg

DRUGS (8)
  1. TEVA-SPIROTON [Concomitant]
     Dosage: 25MG ONCE DAILY
  2. DOCUSATE SODIUM. [Concomitant]
     Active Substance: DOCUSATE SODIUM
     Dosage: 100MG TWICE DAILY
  3. PMS PERINDOPRIL [Concomitant]
     Dosage: 4 MG 1 TAB EVERY MORNING
  4. CLOZARIL [Suspect]
     Active Substance: CLOZAPINE
     Indication: SCHIZOPHRENIA
     Dosage: 450 MG
     Route: 048
     Dates: start: 20170110, end: 20190530
  5. APO-CARVEDILOL [Concomitant]
     Active Substance: CARVEDILOL
     Dosage: 25 MG TABLET TWICE DAILY
  6. MYLAN LAMOTRIGINE [Concomitant]
     Dosage: 150MG TAB ONCE DAILY
  7. ASA 81 [Concomitant]
     Active Substance: ASPIRIN
     Dosage: 1 TAB ONCE DAILY
  8. INVEGA TRINZA [Concomitant]
     Active Substance: PALIPERIDONE PALMITATE
     Dosage: INJECT 525 MG EVERY 13 WEEKS
     Route: 030

REACTIONS (5)
  - Tachycardia [Unknown]
  - Blood glucose abnormal [Unknown]
  - Death [Fatal]
  - Blood prolactin increased [Unknown]
  - QRS axis abnormal [Unknown]

NARRATIVE: CASE EVENT DATE: 20181218
